FAERS Safety Report 5768990-2 (Version None)
Quarter: 2008Q2

REPORT INFORMATION
  Report Type: 
  Country: None (occurrence: None)
  Receive Date: 20080612
  Receipt Date: 20080317
  Transmission Date: 20081010
  Serious: No
  Sender: FDA-Public Use
  Company Number: US-ABBOTT-08P-163-0442965-00

PATIENT
  Sex: Female
  Weight: 93.07 kg

DRUGS (6)
  1. HUMIRA [Suspect]
     Indication: CROHN'S DISEASE
     Route: 058
     Dates: start: 20080311
  2. HUMIRA [Suspect]
     Route: 058
     Dates: start: 20080226, end: 20080226
  3. MESALAMINE [Concomitant]
     Indication: CROHN'S DISEASE
     Route: 048
  4. AZATHIOPINE [Concomitant]
     Indication: CROHN'S DISEASE
     Route: 048
  5. VERAPAMIL [Concomitant]
     Indication: HYPERTENSION
     Route: 048
  6. IRBESARTAN [Concomitant]
     Indication: HYPERTENSION
     Route: 048

REACTIONS (3)
  - INJECTION SITE ERYTHEMA [None]
  - INJECTION SITE PRURITUS [None]
  - URTICARIA [None]
